FAERS Safety Report 10068441 (Version 2)
Quarter: 2014Q2

REPORT INFORMATION
  Report Type: Spontaneous
  Country: US (occurrence: US)
  Receive Date: 20140409
  Receipt Date: 20140409
  Transmission Date: 20141212
  Serious: Yes (Other)
  Sender: FDA-Public Use
  Company Number: CHPA2014US004835

PATIENT
  Age: 77 Year
  Sex: Female

DRUGS (4)
  1. TRANSDERM SCOP [Suspect]
     Indication: MENIERE^S DISEASE
     Dosage: 1 DF, PRN
     Route: 062
  2. TRANSDERM SCOP [Suspect]
     Indication: OFF LABEL USE
  3. TRANSDERM SCOP [Suspect]
     Indication: NAUSEA
  4. TRANSDERM SCOP [Suspect]
     Indication: MOTION SICKNESS

REACTIONS (7)
  - Meniere^s disease [Unknown]
  - Migraine with aura [Unknown]
  - Nausea [Not Recovered/Not Resolved]
  - Application site haemorrhage [Recovered/Resolved]
  - Therapeutic response changed [Unknown]
  - Application site pruritus [Recovered/Resolved]
  - Application site rash [Recovering/Resolving]
